FAERS Safety Report 25806646 (Version 1)
Quarter: 2025Q3

REPORT INFORMATION
  Report Type: Spontaneous
  Country: US (occurrence: US)
  Receive Date: 20250916
  Receipt Date: 20250916
  Transmission Date: 20251021
  Serious: Yes (Other)
  Sender: AILEX PHARMACEUTICALS LLC
  Company Number: US-AP-2025-266244-LIT-27

PATIENT
  Age: 7 Decade
  Sex: Female

DRUGS (1)
  1. CROMOLYN SODIUM [Suspect]
     Active Substance: CROMOLYN SODIUM
     Indication: Mastocytic enterocolitis
     Dosage: 800 MG, DAILY
     Route: 065

REACTIONS (1)
  - Drug ineffective [Fatal]
